FAERS Safety Report 11584559 (Version 1)
Quarter: 2015Q4

REPORT INFORMATION
  Report Type: Report from Study
  Country: US (occurrence: US)
  Receive Date: 20151001
  Receipt Date: 20151001
  Transmission Date: 20160304
  Serious: Yes (Other)
  Sender: FDA-Public Use
  Company Number: US-GILEAD-2015-0173995

PATIENT
  Age: 86 Year
  Sex: Male

DRUGS (4)
  1. ELIQUIS [Interacting]
     Active Substance: APIXABAN
     Indication: PRODUCT USED FOR UNKNOWN INDICATION
     Route: 065
  2. NITROGLYCERIN. [Concomitant]
     Active Substance: NITROGLYCERIN
  3. RANOLAZINE [Suspect]
     Active Substance: RANOLAZINE
     Indication: ANGINA PECTORIS
     Dosage: UNK
     Route: 048
  4. RANOLAZINE [Interacting]
     Active Substance: RANOLAZINE
     Dosage: UNK
     Route: 048

REACTIONS (3)
  - Heart rate irregular [Unknown]
  - Nitrate compound therapy [Unknown]
  - Drug interaction [Recovered/Resolved]
